FAERS Safety Report 25399800 (Version 1)
Quarter: 2025Q2

REPORT INFORMATION
  Report Type: Spontaneous
  Country: GB (occurrence: GB)
  Receive Date: 20250605
  Receipt Date: 20250605
  Transmission Date: 20250716
  Serious: Yes (Death, Life-Threatening, Other)
  Sender: GE HEALTHCARE
  Company Number: GB-GE HEALTHCARE-2025CSU006549

PATIENT
  Age: 96 Year
  Sex: Female

DRUGS (1)
  1. OMNIPAQUE [Suspect]
     Active Substance: IOHEXOL
     Indication: Computerised tomogram abdomen
     Route: 065
     Dates: start: 20250520, end: 20250520

REACTIONS (3)
  - Cardiac arrest [Fatal]
  - Pneumonia aspiration [Fatal]
  - Myocardial ischaemia [Fatal]

NARRATIVE: CASE EVENT DATE: 20250520
